FAERS Safety Report 8604956-2 (Version None)
Quarter: 2012Q3

REPORT INFORMATION
  Report Type: 
  Country: None (occurrence: None)
  Receive Date: 20120820
  Receipt Date: 20120815
  Transmission Date: 20120928
  Serious: Yes (Hospitalization)
  Sender: FDA-Public Use
  Company Number: BR-PFIZER INC-2012200548

PATIENT
  Age: 46 Year
  Sex: Female

DRUGS (2)
  1. CELEBREX [Suspect]
     Indication: PAIN
     Dosage: UNSPECIFIED DOSE, 1X/DAY
     Route: 048
     Dates: start: 20120515
  2. LYRICA [Suspect]
     Indication: PAIN
     Dosage: UNSPECIFIED DOSE, 1X/DAY
     Route: 048
     Dates: start: 20120515

REACTIONS (1)
  - CARPAL TUNNEL SYNDROME [None]
